FAERS Safety Report 6337405-8 (Version None)
Quarter: 2009Q3

REPORT INFORMATION
  Report Type: 
  Country: None (occurrence: None)
  Receive Date: 20090902
  Receipt Date: 20090824
  Transmission Date: 20100115
  Serious: Yes (Hospitalization, Other)
  Sender: FDA-Public Use
  Company Number: JP-JNJFOC-20090806362

PATIENT
  Age: 60 Year
  Sex: Male

DRUGS (2)
  1. ITRIZOLE [Suspect]
     Route: 048
  2. ITRIZOLE [Suspect]
     Indication: ONYCHOMYCOSIS
     Route: 048

REACTIONS (3)
  - HEPATIC FUNCTION ABNORMAL [None]
  - MALAISE [None]
  - PANCREATITIS ACUTE [None]
